FAERS Safety Report 7699353-0 (Version None)
Quarter: 2011Q3

REPORT INFORMATION
  Report Type: 
  Country: None (occurrence: None)
  Receive Date: 20110819
  Receipt Date: 20110808
  Transmission Date: 20111222
  Serious: Yes (Hospitalization, Other)
  Sender: FDA-Public Use
  Company Number: US-BAYER-2010-000331

PATIENT
  Sex: Female
  Weight: 61.224 kg

DRUGS (6)
  1. VITAMINS NOS [Concomitant]
  2. MOTRIN [Concomitant]
  3. YAZ [Suspect]
     Indication: PRODUCT USED FOR UNKNOWN INDICATION
     Dosage: UNK
     Dates: start: 20080122, end: 20081025
  4. VICODIN [Concomitant]
  5. FOLIC ACID [Concomitant]
  6. FERROUS SULFATE TAB [Concomitant]

REACTIONS (2)
  - PULMONARY EMBOLISM [None]
  - BACK PAIN [None]
